FAERS Safety Report 7232421-6 (Version None)
Quarter: 2011Q1

REPORT INFORMATION
  Report Type: 
  Country: None (occurrence: None)
  Receive Date: 20110119
  Receipt Date: 20110112
  Transmission Date: 20110831
  Serious: No
  Sender: FDA-Public Use
  Company Number: US-PFIZER INC-2011009847

PATIENT
  Age: 74 Year
  Sex: Female

DRUGS (2)
  1. ADVIL [Suspect]
     Indication: ARTHRITIS
     Dosage: 1 TAB ONCE A DAY
     Route: 048
     Dates: start: 20101101, end: 20101101
  2. ALEVE [Suspect]
     Dosage: UNK

REACTIONS (2)
  - BLISTER [None]
  - RASH [None]
